FAERS Safety Report 17811172 (Version 1)
Quarter: 2020Q2

REPORT INFORMATION
  Report Type: Spontaneous
  Country: TW (occurrence: TW)
  Receive Date: 20200521
  Receipt Date: 20200521
  Transmission Date: 20200714
  Serious: Yes (Hospitalization, Other)
  Sender: FDA-Public Use
  Company Number: TW-ACCORD-182743

PATIENT
  Age: 71 Year
  Sex: Female

DRUGS (1)
  1. METHOTREXATE. [Suspect]
     Active Substance: METHOTREXATE
     Indication: RHEUMATOID ARTHRITIS
     Route: 048

REACTIONS (9)
  - Febrile neutropenia [Unknown]
  - Pancytopenia [Recovered/Resolved]
  - Ecchymosis [Unknown]
  - Bone marrow failure [Unknown]
  - Decubitus ulcer [Unknown]
  - Candida infection [Unknown]
  - Mouth ulceration [Unknown]
  - Drug level increased [Unknown]
  - Oedema [Unknown]
